FAERS Safety Report 9925437 (Version 1)
Quarter: 2014Q1

REPORT INFORMATION
  Report Type: Spontaneous
  Country: US (occurrence: US)
  Receive Date: 20140226
  Receipt Date: 20140226
  Transmission Date: 20141002
  Serious: Yes (Other)
  Sender: FDA-Public Use
  Company Number: US-AMGEN-USASP2014011895

PATIENT
  Age: 40 Year
  Sex: Female

DRUGS (2)
  1. ARANESP [Suspect]
     Indication: PRODUCT USED FOR UNKNOWN INDICATION
     Dosage: UNK
     Route: 065
  2. EPOGEN [Suspect]
     Indication: PRODUCT USED FOR UNKNOWN INDICATION
     Dosage: UNK
     Route: 065
     Dates: start: 201302

REACTIONS (8)
  - Renal impairment [Unknown]
  - Haemodialysis [Unknown]
  - Haemoglobin decreased [Unknown]
  - Skin haemorrhage [Unknown]
  - Paraesthesia [Unknown]
  - Pain in extremity [Unknown]
  - Sensory loss [Unknown]
  - Pruritus [Unknown]
